FAERS Safety Report 16720352 (Version 1)
Quarter: 2019Q4

REPORT INFORMATION
  Report Type: Spontaneous
  Country: US (occurrence: US)
  Receive Date: 20190819
  Receipt Date: 20190819
  Transmission Date: 20200122
  Serious: Yes (Hospitalization)
  Sender: FDA-Public Use
  Company Number: None

PATIENT
  Age: 83 Year
  Sex: Male

DRUGS (13)
  1. DOK [Concomitant]
     Active Substance: DOCUSATE SODIUM
  2. FUROSEMIDE. [Concomitant]
     Active Substance: FUROSEMIDE
  3. METFORMIN [Concomitant]
     Active Substance: METFORMIN HYDROCHLORIDE
  4. ABIRATERONE ACETATE. [Suspect]
     Active Substance: ABIRATERONE ACETATE
     Indication: PROSTATE CANCER
     Route: 048
     Dates: start: 20190515
  5. ELIQUIS [Concomitant]
     Active Substance: APIXABAN
  6. PRAVASTATIN. [Concomitant]
     Active Substance: PRAVASTATIN
  7. ECONAZOLE. [Concomitant]
     Active Substance: ECONAZOLE NITRATE
  8. CLOTRIMAZOLE. [Concomitant]
     Active Substance: CLOTRIMAZOLE
  9. OXYCODONE AND ACETAMINOPHEN [Concomitant]
     Active Substance: ACETAMINOPHEN\OXYCODONE HYDROCHLORIDE
  10. PREDNISONE. [Concomitant]
     Active Substance: PREDNISONE
  11. METOPROL SUC [Concomitant]
  12. GLIPIZIDE. [Concomitant]
     Active Substance: GLIPIZIDE
  13. METHOCARBAM [Concomitant]
     Active Substance: METHOCARBAMOL

REACTIONS (1)
  - Adverse reaction [None]

NARRATIVE: CASE EVENT DATE: 20190529
